FAERS Safety Report 8286232-3 (Version None)
Quarter: 2012Q2

REPORT INFORMATION
  Report Type: 
  Country: None (occurrence: None)
  Receive Date: 20120416
  Receipt Date: 20120410
  Transmission Date: 20120825
  Serious: No
  Sender: FDA-Public Use
  Company Number: US-PFIZER INC-2012090138

PATIENT
  Sex: Male

DRUGS (3)
  1. ACCUPRIL [Suspect]
     Dosage: UNK
  2. ASPIRIN [Suspect]
     Dosage: UNK
  3. NORVASC [Suspect]
     Dosage: UNK

REACTIONS (2)
  - ANXIETY [None]
  - HEART RATE INCREASED [None]
